FAERS Safety Report 6563076-1 (Version None)
Quarter: 2010Q1

REPORT INFORMATION
  Report Type: 
  Country: None (occurrence: None)
  Receive Date: 20100130
  Receipt Date: 20091203
  Transmission Date: 20100710
  Serious: No
  Sender: FDA-Public Use
  Company Number: US-ABBOTT-09P-163-0612773-00

PATIENT
  Sex: Female
  Weight: 104.42 kg

DRUGS (8)
  1. HUMIRA [Suspect]
     Indication: RHEUMATOID ARTHRITIS
     Dates: start: 20070101
  2. NORVASC [Concomitant]
     Indication: HYPERTENSION
  3. LABETALOL HCL [Concomitant]
     Indication: HYPERTENSION
  4. PREVACID [Concomitant]
     Indication: GASTROOESOPHAGEAL REFLUX DISEASE
  5. PREDNISONE [Concomitant]
     Indication: ARTHRALGIA
  6. NEURONTIN [Concomitant]
     Indication: PAIN
  7. NEURONTIN [Concomitant]
     Indication: INTERVERTEBRAL DISC PROTRUSION
  8. PERCOCET [Concomitant]
     Indication: PAIN

REACTIONS (2)
  - HYPOAESTHESIA [None]
  - PARAESTHESIA [None]
